FAERS Safety Report 6790034-4 (Version None)
Quarter: 2010Q2

REPORT INFORMATION
  Report Type: 
  Country: None (occurrence: None)
  Receive Date: 20100624
  Receipt Date: 20100621
  Transmission Date: 20101027
  Serious: Yes (Death)
  Sender: FDA-Public Use
  Company Number: PHHY2010CA39450

PATIENT
  Sex: Male

DRUGS (2)
  1. ALISKIREN ALI+ [Suspect]
  2. RADIOTHERAPY [Suspect]
     Dosage: UNK

REACTIONS (1)
  - BONE SARCOMA [None]
